FAERS Safety Report 20855154 (Version 1)
Quarter: 2022Q2

REPORT INFORMATION
  Report Type: Spontaneous
  Country: AR (occurrence: AR)
  Receive Date: 20220520
  Receipt Date: 20220520
  Transmission Date: 20220720
  Serious: Yes (Other)
  Sender: FDA-Public Use
  Company Number: AR-BAYER-2022A072004

PATIENT
  Age: 70 Year
  Sex: Male

DRUGS (1)
  1. NEXAVAR [Suspect]
     Active Substance: SORAFENIB
     Indication: Huerthle cell carcinoma
     Dosage: 800 MG, QD

REACTIONS (4)
  - Huerthle cell carcinoma [None]
  - Pelvic pain [None]
  - Metastases to bone [None]
  - Pelvic fracture [None]
